FAERS Safety Report 24415432 (Version 7)
Quarter: 2024Q4

REPORT INFORMATION
  Report Type: Spontaneous
  Country: CA (occurrence: CA)
  Receive Date: 20241009
  Receipt Date: 20241231
  Transmission Date: 20250114
  Serious: Yes (Other)
  Sender: CELLTRION
  Company Number: CA-PFIZER INC-202400265863

PATIENT

DRUGS (8)
  1. INFLECTRA [Suspect]
     Active Substance: INFLIXIMAB-DYYB
     Indication: Colitis ulcerative
     Dosage: 5 MG/KG, WEEK 0 IN HOSPITAL. 2,6 AND THEN EVERY 8 WEEKS.
     Route: 042
     Dates: start: 20240913
  2. INFLECTRA [Suspect]
     Active Substance: INFLIXIMAB-DYYB
     Dosage: 316.5 MG (5MG/KG), 2 WEEKS (WEEK 0 IN HOSPITAL. 2,6 AND THEN EVERY 8 WEEKS)
     Route: 042
     Dates: start: 20240926
  3. INFLECTRA [Suspect]
     Active Substance: INFLIXIMAB-DYYB
     Dosage: 5 MG/KG, WEEK 0 IN HOSPITAL. 2,6 AND THEN EVERY 8 WEEKS.
     Route: 042
     Dates: start: 20241024
  4. INFLECTRA [Suspect]
     Active Substance: INFLIXIMAB-DYYB
     Dosage: 734 MG (10 MG/KG), AFTER 4 WEEKS 1 DAYS (STAT, EVERY 4 WEEKS)
     Route: 042
     Dates: start: 20241122
  5. INFLECTRA [Suspect]
     Active Substance: INFLIXIMAB-DYYB
     Dosage: 743 MG, AFTER 3 WEEKS 6 DAYS
     Route: 042
     Dates: start: 20241219
  6. HYDROCORTISONE [Concomitant]
     Active Substance: HYDROCORTISONE
     Indication: Premedication
     Dosage: UNK
  7. PREDNISONE [Concomitant]
     Active Substance: PREDNISONE
     Dosage: 1 DF, TAPERING DOSE2
     Route: 065
     Dates: start: 20240910
  8. TUMS [Concomitant]
     Active Substance: CALCIUM CARBONATE
     Dosage: UNK

REACTIONS (13)
  - Condition aggravated [Not Recovered/Not Resolved]
  - Hypotension [Recovering/Resolving]
  - Drug ineffective [Unknown]
  - Headache [Recovering/Resolving]
  - Dizziness [Recovering/Resolving]
  - Feeling abnormal [Recovering/Resolving]
  - Cardiac disorder [Recovering/Resolving]
  - Chest pain [Recovering/Resolving]
  - Night sweats [Recovering/Resolving]
  - Feeling hot [Recovering/Resolving]
  - Fatigue [Recovering/Resolving]
  - Asthenia [Recovering/Resolving]
  - Off label use [Unknown]

NARRATIVE: CASE EVENT DATE: 20240101
